FAERS Safety Report 22973119 (Version 4)
Quarter: 2024Q2

REPORT INFORMATION
  Report Type: Spontaneous
  Country: JP (occurrence: None)
  Receive Date: 20230922
  Receipt Date: 20240510
  Transmission Date: 20240716
  Serious: Yes (Life-Threatening, Hospitalization)
  Sender: FDA-Public Use
  Company Number: 2023A211067

PATIENT
  Age: 840 Month
  Sex: Male
  Weight: 45 kg

DRUGS (8)
  1. IMFINZI [Suspect]
     Active Substance: DURVALUMAB
     Indication: Non-small cell lung cancer
     Dosage: 1500.0MG UNKNOWN
     Route: 041
     Dates: start: 20230830, end: 20230830
  2. IMJUDO [Suspect]
     Active Substance: TREMELIMUMAB\TREMELIMUMAB-ACTL
     Indication: Non-small cell lung cancer
     Dosage: 75.0MG UNKNOWN
     Route: 041
     Dates: start: 20230830, end: 20230830
  3. SODIUM PICOSULFATE [Suspect]
     Active Substance: SODIUM PICOSULFATE
     Indication: Constipation
     Dosage: 10 - 15 DROPS
     Route: 048
     Dates: start: 20230902, end: 20230903
  4. CARBOPLATIN [Suspect]
     Active Substance: CARBOPLATIN
     Indication: Non-small cell lung cancer
     Dosage: 850.0MG UNKNOWN
     Dates: start: 20230830, end: 20230830
  5. PEMETREXED [Suspect]
     Active Substance: PEMETREXED
     Indication: Non-small cell lung cancer
     Dosage: 730.0MG UNKNOWN
     Dates: start: 20230830, end: 20230830
  6. FILGRASTIM [Suspect]
     Active Substance: FILGRASTIM
     Indication: Neutrophil count decreased
     Route: 058
     Dates: start: 20230911, end: 20230911
  7. FEBUXOSTAT [Concomitant]
     Active Substance: FEBUXOSTAT
     Indication: Hyperuricaemia
     Route: 048
  8. VITAMINS [Concomitant]
     Active Substance: VITAMINS
     Indication: Chemotherapy side effect prophylaxis
     Route: 048
     Dates: start: 20230804

REACTIONS (3)
  - Intestinal perforation [Recovered/Resolved]
  - Neutrophil count decreased [Recovered/Resolved]
  - Constipation [Recovered/Resolved]

NARRATIVE: CASE EVENT DATE: 20230901
